FAERS Safety Report 24538374 (Version 2)
Quarter: 2025Q1

REPORT INFORMATION
  Report Type: Spontaneous
  Country: JP (occurrence: JP)
  Receive Date: 20241023
  Receipt Date: 20250210
  Transmission Date: 20250408
  Serious: Yes (Other)
  Sender: JOHNSON AND JOHNSON
  Company Number: JP-JNJFOC-20241055157

PATIENT
  Age: 59 Year
  Sex: Female
  Weight: 31 kg

DRUGS (2)
  1. TRACLEER [Suspect]
     Active Substance: BOSENTAN
     Indication: Systemic scleroderma
     Dosage: DOSE UNKNOWN
     Route: 048
     Dates: start: 20171116, end: 20241002
  2. TRACLEER [Suspect]
     Active Substance: BOSENTAN
     Indication: Skin ulcer
     Dosage: DOSE UNKNOWN
     Route: 048
     Dates: start: 20241116

REACTIONS (1)
  - Pancytopenia [Recovering/Resolving]
